FAERS Safety Report 6219244-1 (Version None)
Quarter: 2009Q2

REPORT INFORMATION
  Report Type: 
  Country: None (occurrence: None)
  Receive Date: 20090609
  Receipt Date: 20090601
  Transmission Date: 20091009
  Serious: Yes (Other)
  Sender: FDA-Public Use
  Company Number: GB-ASTRAZENECA-2009GB01179

PATIENT
  Age: 323 Month
  Sex: Female

DRUGS (4)
  1. SEROQUEL [Suspect]
     Indication: BIPOLAR DISORDER
     Route: 048
     Dates: start: 20080201, end: 20080601
  2. SEROQUEL [Suspect]
     Dosage: 600 MG
     Route: 048
     Dates: start: 20080601, end: 20080901
  3. SEROQUEL [Suspect]
     Dosage: 100 + 300 MG
     Route: 048
     Dates: start: 20080901, end: 20081001
  4. SEROQUEL [Suspect]
     Route: 048
     Dates: start: 20081001

REACTIONS (4)
  - DRUG EXPOSURE DURING PREGNANCY [None]
  - INTRACRANIAL PRESSURE INCREASED [None]
  - OPTIC NEURITIS [None]
  - VISION BLURRED [None]
